FAERS Safety Report 14478497 (Version 1)
Quarter: 2018Q1

REPORT INFORMATION
  Report Type: Spontaneous
  Country: VN (occurrence: VN)
  Receive Date: 20180202
  Receipt Date: 20180202
  Transmission Date: 20180509
  Serious: Yes (Other)
  Sender: FDA-Public Use
  Company Number: VN-ROCHE-2060517

PATIENT
  Sex: Male

DRUGS (1)
  1. MABTHERA [Suspect]
     Active Substance: RITUXIMAB
     Indication: B-CELL LYMPHOMA
     Route: 065

REACTIONS (4)
  - Liver disorder [Recovered/Resolved]
  - Diabetes mellitus [Recovering/Resolving]
  - Alopecia [Unknown]
  - Cerebrovascular accident [Recovered/Resolved]
